FAERS Safety Report 14707022 (Version 3)
Quarter: 2020Q2

REPORT INFORMATION
  Report Type: Report from Study
  Country: JP (occurrence: JP)
  Receive Date: 20180403
  Receipt Date: 20200520
  Transmission Date: 20200713
  Serious: Yes (Hospitalization, Other)
  Sender: FDA-Public Use
  Company Number: JP-ALXN-A201803541AA

PATIENT

DRUGS (3)
  1. INCREMIN                           /00023544/ [Concomitant]
     Indication: PAROXYSMAL NOCTURNAL HAEMOGLOBINURIA
     Dosage: 2 ML, DAILY
     Route: 065
     Dates: start: 20170726, end: 20190502
  2. SOLIRIS [Suspect]
     Active Substance: ECULIZUMAB
     Indication: PAROXYSMAL NOCTURNAL HAEMOGLOBINURIA
     Dosage: 600 MG, QW
     Route: 042
     Dates: start: 20180215, end: 20180308
  3. SOLIRIS [Suspect]
     Active Substance: ECULIZUMAB
     Dosage: 900 MG, UNK
     Route: 042
     Dates: start: 20180320

REACTIONS (2)
  - Inappropriate schedule of product administration [Unknown]
  - Haemophilus infection [Unknown]

NARRATIVE: CASE EVENT DATE: 20180320
